FAERS Safety Report 9438123 (Version 1)
Quarter: 2013Q3

REPORT INFORMATION
  Report Type: Spontaneous
  Country: US (occurrence: US)
  Receive Date: 20130802
  Receipt Date: 20130802
  Transmission Date: 20140515
  Serious: No
  Sender: FDA-Public Use
  Company Number: US-BRISTOL-MYERS SQUIBB COMPANY-16907370

PATIENT
  Age: 55 Year
  Sex: Male

DRUGS (2)
  1. WARFARIN SODIUM [Suspect]
     Dates: end: 201208
  2. LETAIRIS [Suspect]
     Dosage: TABS
     Route: 048
     Dates: start: 20111014

REACTIONS (1)
  - Haemorrhage [Unknown]
